FAERS Safety Report 26139538 (Version 1)
Quarter: 2025Q4

REPORT INFORMATION
  Report Type: Spontaneous
  Country: US (occurrence: None)
  Receive Date: 20251209
  Receipt Date: 20251209
  Transmission Date: 20260117
  Serious: Yes (Hospitalization)
  Sender: FDA-CTU
  Company Number: None

PATIENT
  Age: 65 Year
  Sex: Female

DRUGS (3)
  1. METOPIRONE [Suspect]
     Active Substance: METYRAPONE
     Indication: Neuroendocrine tumour
     Route: 048
     Dates: start: 20251129
  2. HUMULIN N [Concomitant]
     Active Substance: INSULIN HUMAN
  3. POTASSIUM POW CHLORIDE [Concomitant]

REACTIONS (3)
  - Disease progression [None]
  - Osteoporotic fracture [None]
  - Open fracture [None]

NARRATIVE: CASE EVENT DATE: 20251101
